FAERS Safety Report 23709124 (Version 1)
Quarter: 2024Q2

REPORT INFORMATION
  Report Type: Spontaneous
  Country: US (occurrence: None)
  Receive Date: 20240404
  Receipt Date: 20240404
  Transmission Date: 20240715
  Serious: No
  Sender: FDA-Public Use
  Company Number: None

PATIENT

DRUGS (2)
  1. EYE WASH SALINE [Suspect]
     Active Substance: SODIUM CHLORIDE\WATER
     Dosage: OTHER QUANTITY : 4FL OZ (118ML)?DOSAGE  :  SOLUTION
  2. ENEMA (SODIUM PHOSPHATE, DIBASIC\SODIUM PHOSPHATE, MONOBASIC) [Suspect]
     Active Substance: SODIUM PHOSPHATE, DIBASIC\SODIUM PHOSPHATE, MONOBASIC
     Dosage: OTHER QUANTITY : 4.5FL OZ (133ML)?OTHER FREQUENCY : 1 BOTTLE?

REACTIONS (4)
  - Product label issue [None]
  - Product packaging issue [None]
  - Wrong product stored [None]
  - Wrong route [None]
